FAERS Safety Report 19081308 (Version 1)
Quarter: 2021Q1

REPORT INFORMATION
  Report Type: Spontaneous
  Country: US (occurrence: US)
  Receive Date: 20210331
  Receipt Date: 20210331
  Transmission Date: 20210420
  Serious: Yes (Hospitalization)
  Sender: FDA-Public Use
  Company Number: US-HORIZON-NVC-ACT-0357-2020

PATIENT

DRUGS (2)
  1. ACTIMMUNE [Suspect]
     Active Substance: INTERFERON GAMMA-1B
     Indication: BREAST CANCER
     Dosage: 50MCG 3 TIMES A WEEK 3 SEPARATED DOSES
     Route: 058
     Dates: start: 20200505
  2. ACTIMMUNE [Suspect]
     Active Substance: INTERFERON GAMMA-1B
     Indication: IMMUNODEFICIENCY

REACTIONS (2)
  - Hospitalisation [Unknown]
  - Off label use [Unknown]
